FAERS Safety Report 13454679 (Version 1)
Quarter: 2017Q2

REPORT INFORMATION
  Report Type: Spontaneous
  Country: US (occurrence: US)
  Receive Date: 20170418
  Receipt Date: 20170418
  Transmission Date: 20170830
  Serious: No
  Sender: FDA-Public Use
  Company Number: None

PATIENT
  Age: 51 Year
  Sex: Female

DRUGS (1)
  1. CEFEPIME [Suspect]
     Active Substance: CEFEPIME HYDROCHLORIDE
     Indication: SINUSITIS
     Dosage: ROUTE - IV PUSH
     Route: 042
     Dates: start: 20170215, end: 20170215

REACTIONS (3)
  - Urticaria [None]
  - Lip swelling [None]
  - Eyelid oedema [None]

NARRATIVE: CASE EVENT DATE: 20170215
